FAERS Safety Report 19996253 (Version 3)
Quarter: 2022Q2

REPORT INFORMATION
  Report Type: Spontaneous
  Country: US (occurrence: US)
  Receive Date: 20211026
  Receipt Date: 20220613
  Transmission Date: 20220721
  Serious: No
  Sender: FDA-Public Use
  Company Number: US-PFIZER INC-2021612944

PATIENT
  Age: 61 Year
  Sex: Male

DRUGS (2)
  1. RAPAMUNE [Suspect]
     Active Substance: SIROLIMUS
     Indication: Heart transplant
     Dosage: 2 MG, 1X/DAY
     Route: 048
  2. TACROLIMUS [Concomitant]
     Active Substance: TACROLIMUS
     Dosage: UNK

REACTIONS (3)
  - Drug level below therapeutic [Unknown]
  - Drug level above therapeutic [Unknown]
  - Off label use [Unknown]
